FAERS Safety Report 5300297-X (Version None)
Quarter: 2007Q2

REPORT INFORMATION
  Report Type: 
  Country: None (occurrence: None)
  Receive Date: 20070410
  Receipt Date: 20070328
  Transmission Date: 20071010
  Serious: Yes (Hospitalization)
  Sender: FDA-Public Use
  Company Number: GXKR2007GB02957

PATIENT
  Age: 60 Year
  Sex: Male
  Weight: 88 kg

DRUGS (9)
  1. AMIODARONE HCL [Suspect]
     Dosage: 200 MG, QD, ORAL
     Route: 048
     Dates: start: 19960517, end: 20061208
  2. XENICAL [Suspect]
     Indication: OBESITY
     Dosage: 120 MG, ORAL
     Route: 048
     Dates: start: 20060814, end: 20061208
  3. CHLORPHENAMINE (CHLORPHENAMINE) [Concomitant]
  4. FLUOXETINE HCL [Concomitant]
  5. GLYCERYL TRINITRATE (GLYCERYL TRINITRATE) [Concomitant]
  6. LISINOPRIL [Concomitant]
  7. MAXITROL (DEXAMETHASONE, NEOMYCIN SULFATE, POLYMYXIN B SULFATE) [Concomitant]
  8. ACETAMINOPHEN [Concomitant]
  9. SIMVASTATIN [Concomitant]

REACTIONS (5)
  - DEHYDRATION [None]
  - FACIAL BONES FRACTURE [None]
  - HYPOTENSION [None]
  - MALAISE [None]
  - SYNCOPE [None]
